FAERS Safety Report 25092358 (Version 1)
Quarter: 2025Q1

REPORT INFORMATION
  Report Type: Spontaneous
  Country: CN (occurrence: CN)
  Receive Date: 20250319
  Receipt Date: 20250319
  Transmission Date: 20250408
  Serious: Yes (Death, Other)
  Sender: RANBAXY
  Company Number: CN-SUN PHARMACEUTICAL INDUSTRIES LTD-2025R1-498854

PATIENT
  Age: 59 Year
  Sex: Female

DRUGS (5)
  1. PEMETREXED [Suspect]
     Active Substance: PEMETREXED
     Indication: Metastases to meninges
     Route: 065
  2. CARBOPLATIN [Suspect]
     Active Substance: CARBOPLATIN
     Indication: Metastases to meninges
     Route: 065
  3. AUMOLERTINIB [Suspect]
     Active Substance: AUMOLERTINIB
     Indication: Metastases to meninges
     Dosage: 220 MILLIGRAM, QD
     Route: 065
  4. OSIMERTINIB [Suspect]
     Active Substance: OSIMERTINIB
     Indication: Metastases to meninges
     Dosage: 160 MILLIGRAM, QD
     Route: 065
  5. AFATINIB [Suspect]
     Active Substance: AFATINIB
     Indication: Metastases to meninges
     Dosage: 30 MILLIGRAM, DAILY
     Route: 065

REACTIONS (1)
  - Condition aggravated [Fatal]
